FAERS Safety Report 16600547 (Version 1)
Quarter: 2019Q3

REPORT INFORMATION
  Report Type: Spontaneous
  Country: ES (occurrence: ES)
  Receive Date: 20190719
  Receipt Date: 20190719
  Transmission Date: 20191004
  Serious: Yes (Other)
  Sender: FDA-Public Use
  Company Number: PHHY2019ES163878

PATIENT
  Age: 31 Year
  Sex: Female

DRUGS (1)
  1. METHYLPREDNISOLONE. [Suspect]
     Active Substance: METHYLPREDNISOLONE
     Indication: RELAPSING MULTIPLE SCLEROSIS
     Dosage: 300 MG, QD
     Route: 042
     Dates: start: 20080513, end: 20080515

REACTIONS (5)
  - Weight decreased [Unknown]
  - Asthenia [Unknown]
  - Hepatic necrosis [Recovered/Resolved]
  - Hepatocellular injury [Recovered/Resolved]
  - Jaundice [Unknown]

NARRATIVE: CASE EVENT DATE: 200805
